FAERS Safety Report 5003953-6 (Version None)
Quarter: 2006Q2

REPORT INFORMATION
  Report Type: 
  Country: None (occurrence: None)
  Receive Date: 20060517
  Receipt Date: 20050922
  Transmission Date: 20061013
  Serious: Yes (Hospitalization)
  Sender: FDA-Public Use
  Company Number: FR-SANOFI-SYNTHELABO-A02200502459

PATIENT
  Age: 81 Year
  Sex: Male

DRUGS (6)
  1. PLAVIX [Suspect]
     Indication: MYOCARDIAL INFARCTION
     Route: 048
     Dates: start: 20050813, end: 20050814
  2. VASTEN [Concomitant]
     Route: 048
     Dates: start: 20040101
  3. NISIS [Concomitant]
     Indication: HYPERTENSION
     Route: 048
     Dates: start: 20040101
  4. AMIODARONE MERCK [Concomitant]
     Route: 048
     Dates: start: 20040101
  5. FORADIL [Concomitant]
     Indication: BRONCHITIS CHRONIC
     Route: 055
     Dates: start: 20040101
  6. MIFLAZONE [Concomitant]
     Indication: BRONCHITIS CHRONIC
     Route: 055
     Dates: start: 20040101

REACTIONS (20)
  - AGITATION [None]
  - BLOOD CREATININE INCREASED [None]
  - BLOOD GLUCOSE INCREASED [None]
  - C-REACTIVE PROTEIN INCREASED [None]
  - ELECTROCARDIOGRAM ST SEGMENT ELEVATION [None]
  - ERYTHEMA [None]
  - FEELING HOT AND COLD [None]
  - HAEMATOCRIT DECREASED [None]
  - HAEMATURIA [None]
  - HYPERHIDROSIS [None]
  - HYPOTENSION [None]
  - MALAISE [None]
  - MYOGLOBIN BLOOD INCREASED [None]
  - OEDEMA PERIPHERAL [None]
  - PRURITUS [None]
  - RASH PAPULAR [None]
  - SOMNOLENCE [None]
  - THINKING ABNORMAL [None]
  - URINARY BLADDER POLYP [None]
  - URTICARIA GENERALISED [None]
